FAERS Safety Report 18728769 (Version 1)
Quarter: 2021Q1

REPORT INFORMATION
  Report Type: Spontaneous
  Country: US (occurrence: US)
  Receive Date: 20210111
  Receipt Date: 20210111
  Transmission Date: 20210419
  Serious: Yes (Hospitalization)
  Sender: FDA-Public Use
  Company Number: None

PATIENT
  Age: 60 Year
  Sex: Male
  Weight: 114.2 kg

DRUGS (1)
  1. CHLORHEXIDINE GLUCONATE 0.12% ORAL RINSE [Suspect]
     Active Substance: CHLORHEXIDINE GLUCONATE
     Indication: ANTIBIOTIC PROPHYLAXIS
     Route: 061
     Dates: start: 20201002, end: 20201105

REACTIONS (6)
  - Sepsis [None]
  - Suspected transmission of an infectious agent via product [None]
  - Burkholderia test positive [None]
  - Candida test positive [None]
  - Recalled product administered [None]
  - Pneumonia [None]

NARRATIVE: CASE EVENT DATE: 20201101
